FAERS Safety Report 14751150 (Version 1)
Quarter: 2018Q2

REPORT INFORMATION
  Report Type: Report from Study
  Country: US (occurrence: US)
  Receive Date: 20180412
  Receipt Date: 20180412
  Transmission Date: 20180711
  Serious: Yes (Hospitalization)
  Sender: FDA-Public Use
  Company Number: US-AMGEN-USASL2018046958

PATIENT
  Age: 83 Year
  Sex: Female

DRUGS (1)
  1. REPATHA [Suspect]
     Active Substance: EVOLOCUMAB
     Indication: HYPERCHOLESTEROLAEMIA
     Dosage: 420 MG, UNK
     Route: 065
     Dates: start: 20170922, end: 20170922

REACTIONS (3)
  - Gait inability [Unknown]
  - Adverse reaction [Unknown]
  - Malaise [Unknown]

NARRATIVE: CASE EVENT DATE: 2017
